FAERS Safety Report 9596519 (Version 1)
Quarter: 2013Q4

REPORT INFORMATION
  Report Type: Spontaneous
  Country: US (occurrence: US)
  Receive Date: 20131004
  Receipt Date: 20131004
  Transmission Date: 20140711
  Serious: Yes (Hospitalization)
  Sender: FDA-Public Use
  Company Number: US-FRI-1000049290

PATIENT
  Sex: Male

DRUGS (8)
  1. VIIBRYD [Suspect]
     Indication: DEPRESSION
     Dosage: 10 MG
     Route: 048
     Dates: start: 201309, end: 201309
  2. VIIBRYD [Suspect]
     Dosage: 20 MG
     Route: 048
     Dates: start: 201309, end: 201309
  3. VIIBRYD [Suspect]
     Indication: DEPRESSION
     Dosage: 40 MG
     Route: 048
     Dates: start: 201309, end: 201309
  4. XARELTO [Concomitant]
  5. SYNTHROID [Concomitant]
  6. ASA [Concomitant]
     Dosage: 81 MG
  7. PRILOSEC [Concomitant]
  8. CIALIS [Concomitant]

REACTIONS (2)
  - Tremor [Not Recovered/Not Resolved]
  - Seizure like phenomena [Not Recovered/Not Resolved]
